FAERS Safety Report 13914250 (Version 1)
Quarter: 2017Q3

REPORT INFORMATION
  Report Type: Spontaneous
  Country: US (occurrence: US)
  Receive Date: 20170828
  Receipt Date: 20170828
  Transmission Date: 20171127
  Serious: No
  Sender: FDA-Public Use
  Company Number: US-ROCHE-1137575

PATIENT
  Age: 8 Year
  Sex: Male

DRUGS (3)
  1. NUTROPIN [Suspect]
     Active Substance: SOMATROPIN
     Indication: GROWTH HORMONE DEFICIENCY
     Route: 058
  2. DDAVP [Concomitant]
     Active Substance: DESMOPRESSIN ACETATE
     Route: 065
  3. CORTEF [Concomitant]
     Active Substance: HYDROCORTISONE

REACTIONS (10)
  - Ear infection [Unknown]
  - Nasopharyngitis [Unknown]
  - Drug ineffective [Unknown]
  - Pyrexia [Unknown]
  - Sinusitis [Unknown]
  - Aphthous ulcer [Unknown]
  - Urinary incontinence [Unknown]
  - Malaise [Unknown]
  - Haematuria [Unknown]
  - Headache [Unknown]

NARRATIVE: CASE EVENT DATE: 19980919
